FAERS Safety Report 6966059-2 (Version None)
Quarter: 2010Q3

REPORT INFORMATION
  Report Type: 
  Country: None (occurrence: None)
  Receive Date: 20100903
  Receipt Date: 20100713
  Transmission Date: 20110219
  Serious: No
  Sender: FDA-Public Use
  Company Number: A0866578A

PATIENT
  Age: 66 Year
  Sex: Female

DRUGS (5)
  1. LAMICTAL [Suspect]
     Indication: BIPOLAR DISORDER
     Dosage: 50MG PER DAY
     Route: 048
     Dates: start: 20100608
  2. LOPRESSOR [Concomitant]
  3. SYNTHROID [Concomitant]
  4. OMEPRAZOLE [Concomitant]
  5. BACTRIM [Concomitant]

REACTIONS (6)
  - DRY MOUTH [None]
  - FATIGUE [None]
  - INSOMNIA [None]
  - MOUTH ULCERATION [None]
  - PYREXIA [None]
  - THERAPEUTIC RESPONSE UNEXPECTED [None]
